FAERS Safety Report 4796874-5 (Version None)
Quarter: 2005Q4

REPORT INFORMATION
  Report Type: 
  Country: None (occurrence: None)
  Receive Date: 20051006
  Receipt Date: 20051006
  Transmission Date: 20060501
  Serious: Yes (Life-Threatening, Hospitalization)
  Sender: FDA-Public Use
  Company Number: None

PATIENT
  Age: 78 Year
  Sex: Male
  Weight: 81 kg

DRUGS (11)
  1. IBUPROFEN [Suspect]
     Indication: PAIN
     Dosage: 600 MG PO Q 6 HRS
     Route: 048
  2. SSI [Concomitant]
  3. GLYBURIDE/MICRONASE [Concomitant]
  4. MICRONASE [Concomitant]
  5. TRIAMTERENE AND HYDROCHLOROTHIAZIDE [Concomitant]
  6. LEVOFLOXACIN [Concomitant]
  7. METFORMIN [Concomitant]
  8. METFORM [Concomitant]
  9. METOCLOPRAMIDE [Concomitant]
  10. MIRTAZAPINE [Concomitant]
  11. QUETIAPINE FUMARATE [Concomitant]

REACTIONS (5)
  - HYPOVOLAEMIA [None]
  - MENTAL STATUS CHANGES [None]
  - NEPHRITIS INTERSTITIAL [None]
  - NEPHROPATHY TOXIC [None]
  - RENAL FAILURE [None]
